FAERS Safety Report 19708015 (Version 1)
Quarter: 2021Q3

REPORT INFORMATION
  Report Type: Spontaneous
  Country: GB (occurrence: GB)
  Receive Date: 20210817
  Receipt Date: 20210817
  Transmission Date: 20211014
  Serious: Yes (Other)
  Sender: FDA-Public Use
  Company Number: GB-MYLANLABS-2021M1051481

PATIENT
  Age: 67 Year
  Sex: Male
  Weight: 70 kg

DRUGS (11)
  1. CLOPIDOGREL [Concomitant]
     Active Substance: CLOPIDOGREL BISULFATE
     Indication: ILL-DEFINED DISORDER
     Dosage: UNK, ONE TO BE TAKEN EACH DAY
     Dates: start: 20191111
  2. PRUCALOPRIDE [Concomitant]
     Active Substance: PRUCALOPRIDE
     Indication: ILL-DEFINED DISORDER
     Dosage: ONE TO BE TAKEN EACH DAY
     Dates: start: 20200324
  3. HYLO?FORTE [Concomitant]
     Active Substance: HYALURONATE SODIUM
     Indication: ILL-DEFINED DISORDER
     Dosage: UNK, APPLY AS SIX TIMES A DAY TO BOTH EYES
     Dates: start: 20191111
  4. BISOPROLOL [Concomitant]
     Active Substance: BISOPROLOL
     Indication: ILL-DEFINED DISORDER
     Dosage: UNK, ONE TO BE TAKEN EACH DAY
     Dates: start: 20191111
  5. PRAVASTATIN. [Concomitant]
     Active Substance: PRAVASTATIN
     Indication: ILL-DEFINED DISORDER
     Dosage: UNK, TAKE ONE AT NIGHT ? PLEASE BOOK FOR LIVER FUNCT...
     Dates: start: 20210709, end: 20210806
  6. ATORVASTATIN [Suspect]
     Active Substance: ATORVASTATIN
     Indication: ILL-DEFINED DISORDER
     Dosage: ONE TO BE TAKEN EACH DAY
     Dates: start: 20191111, end: 20210802
  7. MIRTAZAPINE. [Concomitant]
     Active Substance: MIRTAZAPINE
     Indication: ILL-DEFINED DISORDER
     Dosage: ONE TO BE TAKEN AT NIGHT
     Dates: start: 20191111
  8. LINACLOTIDE [Concomitant]
     Active Substance: LINACLOTIDE
     Indication: ILL-DEFINED DISORDER
     Dosage: UNK, USE AS DIRECTED BY CLINIC
     Dates: start: 20210512, end: 20210609
  9. RISPERIDONE. [Concomitant]
     Active Substance: RISPERIDONE
     Indication: ILL-DEFINED DISORDER
     Dosage: ONE TO BE TAKEN TWICE A DAY
     Dates: start: 20191111
  10. LANSOPRAZOLE. [Concomitant]
     Active Substance: LANSOPRAZOLE
     Indication: ILL-DEFINED DISORDER
     Dosage: ONE TO BE TAKEN EACH MORNING
     Dates: start: 20191128
  11. VENLAFAXINE [Concomitant]
     Active Substance: VENLAFAXINE HYDROCHLORIDE
     Indication: ILL-DEFINED DISORDER
     Dosage: ONE TO BE TAKEN EACH DAY
     Dates: start: 20191111

REACTIONS (1)
  - Liver function test increased [Recovered/Resolved]

NARRATIVE: CASE EVENT DATE: 20210705
